FAERS Safety Report 4349619-7 (Version None)
Quarter: 2004Q1

REPORT INFORMATION
  Report Type: 
  Country: None (occurrence: None)
  Receive Date: 20040329
  Receipt Date: 20031215
  Transmission Date: 20041129
  Serious: No
  Sender: FDA-Public Use
  Company Number: USA031153312

PATIENT
  Age: 8 Year
  Sex: Male
  Weight: 21 kg

DRUGS (2)
  1. STRATTERA [Suspect]
     Indication: ATTENTION DEFICIT/HYPERACTIVITY DISORDER
     Dosage: 25 MG/DAY
     Dates: start: 20030514, end: 20031006
  2. EXTENDRYL [Concomitant]

REACTIONS (3)
  - CHEST PAIN [None]
  - PALPITATIONS [None]
  - TACHYCARDIA [None]
